FAERS Safety Report 8857451 (Version 2)
Quarter: 2013Q2

REPORT INFORMATION
  Report Type: Report from Study
  Country: US (occurrence: US)
  Receive Date: 20121024
  Receipt Date: 20130402
  Transmission Date: 20140414
  Serious: Yes (Other)
  Sender: FDA-Public Use
  Company Number: US-US-EMD SERONO, INC.-7147264

PATIENT
  Sex: Female

DRUGS (3)
  1. REBIF [Suspect]
     Indication: RELAPSING-REMITTING MULTIPLE SCLEROSIS
     Dates: start: 200607, end: 200706
  2. REBIF [Suspect]
     Route: 058
     Dates: start: 20110914
  3. EXTRA STRENGTH TYLENOL PM [Concomitant]
     Indication: PREMEDICATION

REACTIONS (7)
  - Optic nerve disorder [Unknown]
  - Movement disorder [Not Recovered/Not Resolved]
  - Hemiparesis [Unknown]
  - Vision blurred [Unknown]
  - Injection site erythema [Recovered/Resolved]
  - Injection site bruising [Recovered/Resolved]
  - Fatigue [Unknown]
